FAERS Safety Report 21914808 (Version 1)
Quarter: 2023Q1

REPORT INFORMATION
  Report Type: Spontaneous
  Country: CA (occurrence: CA)
  Receive Date: 20230126
  Receipt Date: 20230126
  Transmission Date: 20230418
  Serious: Yes (Other)
  Sender: FDA-Public Use
  Company Number: CA-002147023-NVSC2023CA015103

PATIENT
  Sex: Male

DRUGS (1)
  1. TRAMETINIB [Suspect]
     Active Substance: TRAMETINIB
     Indication: Left ventricle outflow tract obstruction
     Dosage: 0.025 MG/KG, QD
     Route: 065

REACTIONS (4)
  - Language disorder [Unknown]
  - Ear infection [Unknown]
  - Skin lesion [Recovered/Resolved]
  - Off label use [Unknown]
